FAERS Safety Report 21001851 (Version 1)
Quarter: 2022Q2

REPORT INFORMATION
  Report Type: Report from Study
  Country: DE (occurrence: None)
  Receive Date: 20220624
  Receipt Date: 20220624
  Transmission Date: 20220721
  Serious: Yes (Life-Threatening, Hospitalization)
  Sender: FDA-Public Use
  Company Number: DE-ROCHE-3117100

PATIENT
  Age: 67 Year
  Sex: Female
  Weight: 56 kg

DRUGS (17)
  1. ATEZOLIZUMAB [Suspect]
     Active Substance: ATEZOLIZUMAB
     Indication: Triple negative breast cancer
     Dosage: DATE OF LAST DOSE PRIOR TO SAE: 13 /APR2022
     Route: 041
     Dates: start: 20220209
  2. PACLITAXEL [Suspect]
     Active Substance: PACLITAXEL
     Indication: Triple negative breast cancer
     Dosage: DATE OF LAST DOSE PRIOR TO SAE: 06/APR/2022
     Route: 042
     Dates: start: 20220209
  3. CARBOPLATIN [Suspect]
     Active Substance: CARBOPLATIN
     Indication: Triple negative breast cancer
     Dosage: DATE OF LAST DOSE PRIOR TO SAE:27/APR/2022
     Route: 042
     Dates: start: 20220209
  4. EPIRUBICIN [Suspect]
     Active Substance: EPIRUBICIN
     Indication: Triple negative breast cancer
     Dosage: DATE OF LAST DOSE PRIOR TO SAE: 04/MAY/2022
     Route: 042
     Dates: start: 20220504
  5. FILGRASTIM [Concomitant]
     Active Substance: FILGRASTIM
     Dosage: 30MIO IE OTHER
     Dates: start: 20220223
  6. ZOFRAN [Concomitant]
     Active Substance: ONDANSETRON HYDROCHLORIDE
     Dates: start: 20220209
  7. DEXAMETHASONE [Concomitant]
     Active Substance: DEXAMETHASONE
     Dates: start: 20220209, end: 20220223
  8. DEXAMETHASONE [Concomitant]
     Active Substance: DEXAMETHASONE
     Dates: start: 20220309
  9. DIMETHINDENE [Concomitant]
     Active Substance: DIMETHINDENE
     Dates: start: 20220209
  10. DIMENHYDRINATE [Concomitant]
     Active Substance: DIMENHYDRINATE
     Dates: start: 20220220
  11. COVID-19 VACCINE [Concomitant]
     Dates: start: 20210424, end: 20210424
  12. COVID-19 VACCINE [Concomitant]
     Dates: start: 20210717, end: 20210717
  13. COVID-19 VACCINE [Concomitant]
     Dates: start: 20211218, end: 20211218
  14. INFLUENZA VIRUS VACCINE [Concomitant]
     Active Substance: INFLUENZA VIRUS VACCINE
     Dates: start: 20151008, end: 20151008
  15. MCP [Concomitant]
     Active Substance: METOCLOPRAMIDE HYDROCHLORIDE
     Dates: start: 20220401
  16. GELOSITIN [Concomitant]
     Dates: start: 20220326
  17. LEVOTHYROXINE SODIUM [Concomitant]
     Active Substance: LEVOTHYROXINE SODIUM
     Dates: start: 20220413

REACTIONS (1)
  - Pancytopenia [Recovered/Resolved]

NARRATIVE: CASE EVENT DATE: 20220513
